FAERS Safety Report 8249744-4 (Version None)
Quarter: 2012Q2

REPORT INFORMATION
  Report Type: 
  Country: None (occurrence: None)
  Receive Date: 20120402
  Receipt Date: 20120319
  Transmission Date: 20120825
  Serious: Yes (Hospitalization)
  Sender: FDA-Public Use
  Company Number: IT-MYLANLABS-2012S1006022

PATIENT
  Age: 82 Year
  Sex: Female

DRUGS (1)
  1. LORAZEPAM [Suspect]
     Route: 048
     Dates: start: 20091224, end: 20091224

REACTIONS (4)
  - INTENTIONAL OVERDOSE [None]
  - BRADYKINESIA [None]
  - BRADYPHRENIA [None]
  - SOMNOLENCE [None]
